FAERS Safety Report 8326804-0 (Version None)
Quarter: 2012Q2

REPORT INFORMATION
  Report Type: 
  Country: None (occurrence: None)
  Receive Date: 20120501
  Receipt Date: 20110808
  Transmission Date: 20120825
  Serious: No
  Sender: FDA-Public Use
  Company Number: US-SANOFI-AVENTIS-2011SA054094

PATIENT
  Age: 53 Year
  Sex: Male

DRUGS (4)
  1. APIDRA [Suspect]
     Route: 058
  2. LANTUS [Concomitant]
     Indication: TYPE 2 DIABETES MELLITUS
  3. SOLOSTAR [Concomitant]
     Indication: TYPE 2 DIABETES MELLITUS
  4. FUROSEMIDE [Suspect]
     Route: 065

REACTIONS (1)
  - BLOOD SODIUM DECREASED [None]
